FAERS Safety Report 8239784-3 (Version None)
Quarter: 2012Q1

REPORT INFORMATION
  Report Type: 
  Country: None (occurrence: None)
  Receive Date: 20120328
  Receipt Date: 20120322
  Transmission Date: 20120608
  Serious: Yes (Death, Life-Threatening)
  Sender: FDA-Public Use
  Company Number: JP-SANOFI-AVENTIS-2011SA025317

PATIENT
  Sex: Female
  Weight: 47 kg

DRUGS (8)
  1. ASPIRIN [Suspect]
     Route: 048
     Dates: end: 20100729
  2. AMLODIPINE [Concomitant]
     Indication: HYPERTENSION
     Route: 048
     Dates: start: 20110101, end: 20110114
  3. ATORVASTATIN [Concomitant]
     Route: 048
     Dates: end: 20110114
  4. SERMION [Concomitant]
     Route: 048
     Dates: end: 20110114
  5. ROHYPNOL [Concomitant]
     Route: 048
     Dates: start: 20100319, end: 20110114
  6. LANSOPRAZOLE [Concomitant]
     Route: 048
     Dates: start: 20100319, end: 20110114
  7. ATENOLOL AND CHLORTHALIDONE [Suspect]
     Route: 048
     Dates: start: 20100304, end: 20100729
  8. MYONAL [Concomitant]
     Route: 048
     Dates: end: 20110114

REACTIONS (2)
  - COLON CANCER [None]
  - MELAENA [None]
